FAERS Safety Report 10470669 (Version 2)
Quarter: 2014Q3

REPORT INFORMATION
  Report Type: Spontaneous
  Country: US (occurrence: US)
  Receive Date: 20140923
  Receipt Date: 20140923
  Transmission Date: 20150326
  Serious: Yes (Hospitalization)
  Sender: FDA-Public Use
  Company Number: US-GLAXOSMITHKLINE-A0832057A

PATIENT
  Sex: Male
  Weight: 188.6 kg

DRUGS (14)
  1. LOPRESSOR [Concomitant]
     Active Substance: METOPROLOL TARTRATE
  2. LISINOPRIL. [Concomitant]
     Active Substance: LISINOPRIL
  3. TRICOR [Concomitant]
     Active Substance: FENOFIBRATE
  4. COLCHICINE. [Concomitant]
     Active Substance: COLCHICINE
  5. CELEBREX [Concomitant]
     Active Substance: CELECOXIB
  6. AMARYL [Concomitant]
     Active Substance: GLIMEPIRIDE
  7. TRIAMTERENE HCTZ [Concomitant]
     Active Substance: HYDROCHLOROTHIAZIDE\TRIAMTERENE
  8. AVANDIA [Suspect]
     Active Substance: ROSIGLITAZONE MALEATE
     Indication: TYPE 2 DIABETES MELLITUS
     Dosage: 8MG PER DAY
     Route: 048
     Dates: start: 200309, end: 200712
  9. CRESTOR [Concomitant]
     Active Substance: ROSUVASTATIN CALCIUM
  10. ZETIA [Concomitant]
     Active Substance: EZETIMIBE
  11. WELLBUTRIN [Concomitant]
     Active Substance: BUPROPION HYDROCHLORIDE
  12. AVALIDE [Concomitant]
     Active Substance: HYDROCHLOROTHIAZIDE\IRBESARTAN
  13. FAMOTIDINE. [Concomitant]
     Active Substance: FAMOTIDINE
  14. NAPROSYN [Concomitant]
     Active Substance: NAPROXEN

REACTIONS (5)
  - Arterial occlusive disease [Not Recovered/Not Resolved]
  - Myocardial ischaemia [Unknown]
  - Coronary artery disease [Unknown]
  - Cardiac disorder [Unknown]
  - Vision blurred [Unknown]
